FAERS Safety Report 8196154-4 (Version None)
Quarter: 2012Q1

REPORT INFORMATION
  Report Type: 
  Country: None (occurrence: None)
  Receive Date: 20120223
  Receipt Date: 20111101
  Transmission Date: 20120608
  Serious: Yes (Hospitalization)
  Sender: FDA-Public Use
  Company Number: WAES 1111USA00265

PATIENT
  Age: 60 Year
  Sex: Female

DRUGS (3)
  1. ZOCOR [Suspect]
     Indication: BLOOD CHOLESTEROL INCREASED
     Dosage: 80 MG/DAILY/PO
     Route: 048
  2. CLARITHROMYCIN [Concomitant]
  3. COUMADIN [Concomitant]

REACTIONS (1)
  - RHABDOMYOLYSIS [None]
